FAERS Safety Report 4413995-7 (Version None)
Quarter: 2004Q3

REPORT INFORMATION
  Report Type: 
  Country: None (occurrence: None)
  Receive Date: 20040728
  Receipt Date: 20040723
  Transmission Date: 20050211
  Serious: Yes (Other)
  Sender: FDA-Public Use
  Company Number: NLWYE824214JUN04

PATIENT
  Age: 40 Year
  Sex: Female

DRUGS (2)
  1. EFFEXOR [Suspect]
     Indication: DEPRESSION
  2. SEROQUEL [Suspect]
     Indication: DEPRESSION

REACTIONS (12)
  - BUNDLE BRANCH BLOCK LEFT [None]
  - CARDIAC MURMUR [None]
  - CARDIOMYOPATHY [None]
  - CHEST PAIN [None]
  - CONDUCTION DISORDER [None]
  - CORONARY ARTERY DISEASE [None]
  - DYSPNOEA [None]
  - FATIGUE [None]
  - GALLOP RHYTHM PRESENT [None]
  - MITRAL VALVE INCOMPETENCE [None]
  - TACHYCARDIA [None]
  - VENTRICULAR DYSFUNCTION [None]
